FAERS Safety Report 18861399 (Version 1)
Quarter: 2021Q1

REPORT INFORMATION
  Report Type: Spontaneous
  Country: US (occurrence: US)
  Receive Date: 20210208
  Receipt Date: 20210208
  Transmission Date: 20210420
  Serious: No
  Sender: FDA-Public Use
  Company Number: US-JNJFOC-20210141393

PATIENT
  Age: 4 Month
  Sex: Male

DRUGS (1)
  1. TYLENOL [Suspect]
     Active Substance: ACETAMINOPHEN
     Indication: TEETHING
     Dosage: TAKING THE MEDICATION AS NEEDED
     Route: 065

REACTIONS (2)
  - Irritability [Unknown]
  - Rash [Unknown]
